FAERS Safety Report 4540005-3 (Version None)
Quarter: 2004Q4

REPORT INFORMATION
  Report Type: 
  Country: None (occurrence: None)
  Receive Date: 20041228
  Receipt Date: 20040224
  Transmission Date: 20050328
  Serious: Yes (Hospitalization, Other)
  Sender: FDA-Public Use
  Company Number: US-ABBOTT-04P-163-0251393-00

PATIENT
  Age: 10 Year
  Sex: Female
  Weight: 33 kg

DRUGS (19)
  1. HUMIRA [Suspect]
     Indication: JUVENILE ARTHRITIS
     Route: 058
     Dates: start: 20030507, end: 20040216
  2. IBUPROFEN [Concomitant]
     Indication: RHEUMATOID ARTHRITIS
     Dates: start: 20030824
  3. IBUPROFEN [Concomitant]
     Dates: start: 20040312
  4. SALICYLIC ACID [Concomitant]
     Indication: ACNE
     Route: 061
     Dates: start: 20030715
  5. ONDANSETRON HCL [Concomitant]
     Indication: PROPHYLAXIS OF NAUSEA AND VOMITING
     Dates: start: 20040302, end: 20040302
  6. ONDANSETRON HCL [Concomitant]
  7. ACETAMINOPHEN W/ CODEINE [Concomitant]
     Indication: POST PROCEDURAL PAIN
     Dates: start: 20040302, end: 20040303
  8. ACETAMINOPHEN W/ CODEINE [Concomitant]
     Dates: start: 20040302, end: 20040303
  9. ONDANSETRON [Concomitant]
     Indication: PROPHYLAXIS OF NAUSEA AND VOMITING
     Dates: start: 20040302, end: 20040302
  10. ONDANSETRON [Concomitant]
  11. MORPHINE [Concomitant]
     Indication: PAIN PROPHYLAXIS
     Dates: start: 20040302, end: 20040302
  12. DIPHENHYDRAMINE HYDROCHLORIDE [Concomitant]
     Indication: PROPHYLAXIS
     Dates: start: 20040224, end: 20040224
  13. DIPHENHYDRAMINE HYDROCHLORIDE [Concomitant]
     Dates: start: 20040224, end: 20040224
  14. IBUPROFEN [Concomitant]
     Indication: PYREXIA
     Dates: start: 20040223, end: 20040223
  15. IBUPROFEN [Concomitant]
     Indication: HEADACHE
  16. ALOE PLANT [Concomitant]
     Indication: ACNE
     Route: 061
     Dates: start: 20030827
  17. METHOTREXATE [Concomitant]
     Indication: RHEUMATOID ARTHRITIS
     Route: 058
     Dates: start: 20040416
  18. PARACETAMOL [Concomitant]
     Indication: POST PROCEDURAL PAIN
     Dates: start: 20040302, end: 20040303
  19. POTASSIUM CHLORIDE [Concomitant]
     Indication: PROPHYLAXIS AGAINST DEHYDRATION
     Dates: start: 20040303, end: 20040303

REACTIONS (2)
  - HYDROCEPHALUS [None]
  - VIRAL INFECTION [None]
